FAERS Safety Report 8271490-1 (Version None)
Quarter: 2012Q2

REPORT INFORMATION
  Report Type: 
  Country: None (occurrence: None)
  Receive Date: 20120410
  Receipt Date: 20120404
  Transmission Date: 20120825
  Serious: Yes (Other)
  Sender: FDA-Public Use
  Company Number: FI-AMGEN-FINSP2012018359

PATIENT
  Age: 65 Year
  Sex: Male

DRUGS (9)
  1. OMEPRAZOLE [Concomitant]
     Dosage: UNK
  2. XGEVA [Suspect]
     Indication: METASTATIC MALIGNANT MELANOMA
     Dosage: UNK
     Dates: start: 20120224
  3. OXINORM [Concomitant]
     Dosage: UNK
  4. TENOX [Concomitant]
     Dosage: UNK
  5. DURAGESIC-100 [Concomitant]
     Dosage: UNK
  6. DEXAMETASON [Concomitant]
     Dosage: UNK
  7. XGEVA [Suspect]
     Indication: METASTASES TO BONE
  8. LAXORIN [Concomitant]
     Dosage: UNK
  9. CALCICHEW D3 FORTE [Concomitant]
     Dosage: UNK

REACTIONS (4)
  - DYSKINESIA [None]
  - PAIN [None]
  - THROMBOCYTOPENIA [None]
  - TREMOR [None]
